FAERS Safety Report 8481537-5 (Version None)
Quarter: 2012Q3

REPORT INFORMATION
  Report Type: 
  Country: None (occurrence: None)
  Receive Date: 20120702
  Receipt Date: 20120625
  Transmission Date: 20120928
  Serious: Yes (Hospitalization, Other)
  Sender: FDA-Public Use
  Company Number: US-BAYER-2012-028735

PATIENT
  Age: 27 Year
  Sex: Female
  Weight: 75 kg

DRUGS (22)
  1. BUPROPION HYDROCHLORIDE [Concomitant]
     Dosage: 150 MG, UNK
     Dates: start: 20110812, end: 20110904
  2. PULMICORT [Concomitant]
  3. VITAMIN D [Concomitant]
  4. SIMVASTATIN [Concomitant]
     Dosage: UNK
     Dates: start: 20110307, end: 20110826
  5. YAZ [Suspect]
     Indication: CONTRACEPTION
     Dosage: UNK
     Route: 048
     Dates: start: 20081101, end: 20110101
  6. AMOXICILLIN [Concomitant]
     Dosage: 1/YEAR [AS WRITTEN]
     Dates: start: 20050101
  7. FLUVIRIN [Concomitant]
     Dosage: UNK
     Dates: start: 20110930
  8. NAPROXEN (ALEVE) [Concomitant]
     Dosage: UNK
     Dates: start: 20080101
  9. VENTOLIN [Concomitant]
     Dosage: UNK
     Dates: start: 20111027
  10. OLOPATADINE [Concomitant]
  11. MICROGESTIN 1.5/30 [Concomitant]
     Dosage: UNK
     Dates: start: 20111201
  12. CLARITIN [Concomitant]
  13. CLARITHROMYCIN [Concomitant]
  14. VENTOLIN [Concomitant]
     Dosage: UNK
     Dates: start: 20110101
  15. VITAMIN B-12 [Concomitant]
  16. DOXEPIN [Concomitant]
     Dosage: 10 MG, UNK
     Dates: start: 20110928, end: 20111103
  17. YAZ [Suspect]
     Indication: PREMENSTRUAL SYNDROME
     Dosage: UNK
     Dates: start: 20110601, end: 20111101
  18. DROSPIRENONE AND ETHINYL ESTRADIOL [Suspect]
     Indication: CONTRACEPTION
     Dosage: UNK
     Dates: start: 20080101, end: 20100101
  19. PROAIR HFA [Concomitant]
     Dosage: 8.5 G, UNK
     Route: 045
     Dates: start: 20111021
  20. FLONASE [Concomitant]
  21. SINGULAIR [Concomitant]
  22. BIAXIN [Concomitant]

REACTIONS (7)
  - HEPATOBILIARY SCAN ABNORMAL [None]
  - CHOLELITHIASIS [None]
  - PAIN [None]
  - ANXIETY [None]
  - CHOLECYSTITIS CHRONIC [None]
  - GENERAL PHYSICAL HEALTH DETERIORATION [None]
  - EMOTIONAL DISTRESS [None]
